FAERS Safety Report 18733348 (Version 1)
Quarter: 2021Q1

REPORT INFORMATION
  Report Type: Spontaneous
  Country: US (occurrence: US)
  Receive Date: 20210113
  Receipt Date: 20210113
  Transmission Date: 20210419
  Serious: No
  Sender: FDA-Public Use
  Company Number: US-CELGENEUS-USA-20210100714

PATIENT
  Sex: Female

DRUGS (1)
  1. REBLOZYL [Suspect]
     Active Substance: LUSPATERCEPT-AAMT
     Indication: PRODUCT USED FOR UNKNOWN INDICATION
     Route: 058
     Dates: start: 202008, end: 20201127

REACTIONS (5)
  - Amnesia [Unknown]
  - Unevaluable event [Unknown]
  - Hypersomnia [Unknown]
  - Diarrhoea [Unknown]
  - Decreased appetite [Unknown]
